FAERS Safety Report 21979308 (Version 1)
Quarter: 2023Q1

REPORT INFORMATION
  Report Type: Spontaneous
  Country: US (occurrence: US)
  Receive Date: 20230210
  Receipt Date: 20230210
  Transmission Date: 20230417
  Serious: No
  Sender: FDA-Public Use
  Company Number: US-BIOGEN-2023BI01186830

PATIENT
  Sex: Female

DRUGS (1)
  1. TECFIDERA [Suspect]
     Active Substance: DIMETHYL FUMARATE
     Indication: Multiple sclerosis
     Route: 050
     Dates: start: 2020

REACTIONS (2)
  - Gait disturbance [Not Recovered/Not Resolved]
  - Atrophy [Not Recovered/Not Resolved]

NARRATIVE: CASE EVENT DATE: 20230101
